FAERS Safety Report 4412678-7 (Version None)
Quarter: 2004Q2

REPORT INFORMATION
  Report Type: 
  Country: None (occurrence: None)
  Receive Date: 20040630
  Receipt Date: 20040427
  Transmission Date: 20050107
  Serious: No
  Sender: FDA-Public Use
  Company Number: 04P-163-0253742

PATIENT
  Sex: Female

DRUGS (8)
  1. HUMIRA [Suspect]
     Indication: RHEUMATOID ARTHRITIS
     Dosage: 40 MG, SUBCUTANEOUS
     Route: 058
     Dates: end: 20040223
  2. PREDNISONE [Concomitant]
  3. ASCORBIC ACID [Concomitant]
  4. TOCOPHEROL CONCENTRATE CAP [Concomitant]
  5. LYSINE [Concomitant]
  6. KETOPROFEN [Concomitant]
  7. RISEDRONATE SODIUM [Concomitant]
  8. LEFLUNOMIDE [Concomitant]

REACTIONS (1)
  - RASH GENERALISED [None]
